FAERS Safety Report 24359209 (Version 1)
Quarter: 2024Q3

REPORT INFORMATION
  Report Type: Report from Study
  Country: IT (occurrence: IT)
  Receive Date: 20240924
  Receipt Date: 20240924
  Transmission Date: 20241017
  Serious: No
  Sender: BLUEPRINT MEDICINES
  Company Number: IT-ROCHE-3500721

PATIENT

DRUGS (2)
  1. PRALSETINIB [Suspect]
     Active Substance: PRALSETINIB
     Indication: Medullary thyroid cancer
     Dosage: 100 MILLIGRAM, QD
     Route: 048
     Dates: end: 20230908
  2. PRALSETINIB [Suspect]
     Active Substance: PRALSETINIB
     Dosage: 100 MILLIGRAM EVERY OTHER DAY
     Route: 048
     Dates: start: 20231228

REACTIONS (1)
  - Pneumonia [Unknown]
